FAERS Safety Report 5713396-5 (Version None)
Quarter: 2008Q2

REPORT INFORMATION
  Report Type: 
  Country: None (occurrence: None)
  Receive Date: 20080422
  Receipt Date: 20080402
  Transmission Date: 20081010
  Serious: Yes (Life-Threatening, Other)
  Sender: FDA-Public Use
  Company Number: US-ELI_LILLY_AND_COMPANY-US200804000560

PATIENT
  Sex: Female
  Weight: 92.971 kg

DRUGS (5)
  1. BYETTA [Suspect]
     Dosage: 5 UG, 2/D
     Route: 058
     Dates: start: 20080329, end: 20080401
  2. RELAFEN [Concomitant]
     Indication: BACK INJURY
     Dates: start: 20080301, end: 20080401
  3. METFORMIN HCL [Concomitant]
     Indication: DIABETES MELLITUS
     Dosage: 500 MG, 2/D
     Route: 048
  4. ANALGESICS [Concomitant]
  5. TORADOL [Concomitant]

REACTIONS (4)
  - ANAPHYLACTIC REACTION [None]
  - DEHYDRATION [None]
  - FATIGUE [None]
  - LOSS OF CONSCIOUSNESS [None]
